FAERS Safety Report 9188057 (Version 1)
Quarter: 2013Q1

REPORT INFORMATION
  Report Type: Spontaneous
  Country: US (occurrence: US)
  Receive Date: 20130325
  Receipt Date: 20130325
  Transmission Date: 20140127
  Serious: No
  Sender: FDA-Public Use
  Company Number: US-MYLANLABS-2013S1001025

PATIENT
  Age: 65 Year
  Sex: Male

DRUGS (13)
  1. FENTANYL TRANSDERMAL SYSTEM [Suspect]
     Indication: PAIN
     Dosage: CHANGED Q72H
     Route: 062
     Dates: start: 201205
  2. FENTANYL TRANSDERMAL SYSTEM [Suspect]
     Indication: RHEUMATOID ARTHRITIS
     Dosage: CHANGED Q72H
     Route: 062
     Dates: start: 201205
  3. OMEPRAZOLE [Concomitant]
     Route: 048
  4. BYSTOLIC [Concomitant]
     Route: 048
  5. FUROSEMIDE [Concomitant]
     Route: 048
  6. PREDNISONE [Concomitant]
     Route: 048
  7. FOLIC ACID [Concomitant]
     Route: 048
  8. LIPITOR [Concomitant]
     Route: 048
  9. SINGULAR [Concomitant]
     Route: 048
  10. HYDROCODONE [Concomitant]
     Dosage: 10MG/5MG
     Route: 048
  11. AMLODIPINE [Concomitant]
     Route: 048
  12. METHOTREXATE [Concomitant]
     Route: 048
  13. POTASSIUM [Concomitant]
     Route: 048

REACTIONS (3)
  - Drug ineffective [Not Recovered/Not Resolved]
  - Pain [Not Recovered/Not Resolved]
  - Drug screen negative [Not Recovered/Not Resolved]
